FAERS Safety Report 19206724 (Version 1)
Quarter: 2021Q2

REPORT INFORMATION
  Report Type: Spontaneous
  Country: TW (occurrence: TW)
  Receive Date: 20210430
  Receipt Date: 20210430
  Transmission Date: 20210717
  Serious: Yes (Death)
  Sender: FDA-Public Use
  Company Number: TW-PFIZER INC-2021297948

PATIENT
  Sex: Female

DRUGS (3)
  1. SUTENT [Suspect]
     Active Substance: SUNITINIB MALATE
     Dosage: UNK, CYCLIC (SCHEDULE 4/2 TWICE)
     Dates: start: 202012
  2. SUTENT [Suspect]
     Active Substance: SUNITINIB MALATE
     Indication: RENAL CELL CARCINOMA
     Dosage: UNK, CYCLIC (SCHEDULE 2/1 FOR 5 TIMES)
     Dates: start: 202008
  3. SUTENT [Suspect]
     Active Substance: SUNITINIB MALATE
     Dosage: 50 MG, CYCLIC (DAILY, 2 WEEKS ON 1 WEEK OFF)
     Route: 048
     Dates: start: 202104

REACTIONS (3)
  - Aspartate aminotransferase increased [Unknown]
  - Death [Fatal]
  - Alanine aminotransferase increased [Unknown]

NARRATIVE: CASE EVENT DATE: 202103
